FAERS Safety Report 9399814 (Version 1)
Quarter: 2013Q3

REPORT INFORMATION
  Report Type: Spontaneous
  Country: AU (occurrence: AU)
  Receive Date: 20130715
  Receipt Date: 20130715
  Transmission Date: 20140515
  Serious: Yes (Other)
  Sender: FDA-Public Use
  Company Number: PHHY2013AU072907

PATIENT
  Sex: Female

DRUGS (3)
  1. ZOLEDRONATE [Suspect]
  2. PARACETAMOL [Suspect]
  3. IBUPROFEN [Suspect]

REACTIONS (13)
  - C-reactive protein increased [Unknown]
  - Liver function test abnormal [Unknown]
  - Nasopharyngitis [Unknown]
  - Cold sweat [Unknown]
  - Insomnia [Unknown]
  - Musculoskeletal stiffness [Unknown]
  - Arthralgia [Unknown]
  - Head discomfort [Unknown]
  - Nausea [Unknown]
  - Chills [Unknown]
  - Dizziness [Unknown]
  - Headache [Unknown]
  - Malaise [Unknown]
